FAERS Safety Report 8816885 (Version 3)
Quarter: 2013Q1

REPORT INFORMATION
  Report Type: Spontaneous
  Country: IN (occurrence: None)
  Receive Date: 20121002
  Receipt Date: 20121015
  Transmission Date: 20140127
  Serious: Yes (Hospitalization)
  Sender: FDA-Public Use
  Company Number: 7162880

PATIENT
  Age: 66 Year
  Sex: Female

DRUGS (6)
  1. THYROXINE [Suspect]
     Indication: HYPOTHYROIDISM
  2. CLONAZEPAM(CLONAZEPAM) [Concomitant]
  3. ROSUVASTATIN(ROSUVASTATIN) [Concomitant]
  4. CINNARIZINE(CINNARIZINE) [Concomitant]
  5. TELMISARTAN/AMLODIPINE(TABLET) (TELMISARTAN, AMLODIPINE) [Concomitant]
  6. PANTOPRAZOLE(PANTOPRAZOLE) [Concomitant]

REACTIONS (6)
  - Hyperthyroidism [None]
  - Ocular hyperaemia [None]
  - Erythema multiforme [None]
  - Supraventricular extrasystoles [None]
  - Carotid arteriosclerosis [None]
  - Bradycardia [None]
